FAERS Safety Report 10716542 (Version 3)
Quarter: 2015Q1

REPORT INFORMATION
  Report Type: Spontaneous
  Country: FR (occurrence: FR)
  Receive Date: 20150116
  Receipt Date: 20150121
  Transmission Date: 20150721
  Serious: Yes (Other)
  Sender: FDA-Public Use
  Company Number: FR-009507513-1501FRA005455

PATIENT
  Age: 11 Year
  Sex: Female

DRUGS (14)
  1. VINCRISTINE SULFATE. [Concomitant]
     Active Substance: VINCRISTINE SULFATE
     Indication: RHABDOMYOSARCOMA
     Dosage: AT DAY 1, DAY 8, DAY 15:1.5 MG/M2 IE 2 MG
     Dates: start: 20141031
  2. VINCRISTINE SULFATE. [Concomitant]
     Active Substance: VINCRISTINE SULFATE
     Dosage: ON DAY 1: 1.5 MG/M2 SO 1.95 MG
     Dates: start: 20141121
  3. EMEND [Suspect]
     Active Substance: APREPITANT
     Indication: PROPHYLAXIS OF NAUSEA AND VOMITING
     Dosage: 180 MG AT DAY 1,
     Route: 048
     Dates: start: 20141031, end: 20141031
  4. EMEND [Suspect]
     Active Substance: APREPITANT
     Dosage: 80 MG AT DAY 2 AND DAY 3
     Route: 048
     Dates: start: 20141101, end: 20141102
  5. IFOSFAMIDE. [Suspect]
     Active Substance: IFOSFAMIDE
     Dosage: 3000 MG/M2 ON DAY 1 AND 2,SO 3900 MG
     Route: 042
     Dates: start: 20141121, end: 20141121
  6. DACTINOMYCIN [Concomitant]
     Active Substance: DACTINOMYCIN
     Indication: RHABDOMYOSARCOMA
     Dosage: AT DAY 1: AT 1500 MICROG/M2 I.E 2000 MICROG
     Dates: start: 20141031
  7. DOXORUBICIN [Concomitant]
     Active Substance: DOXORUBICIN
     Indication: RHABDOMYOSARCOMA
     Dosage: AT DAY 1: AT 30 MG/MG2 I.E 42 MG
     Dates: start: 20141031
  8. DOXORUBICIN [Concomitant]
     Active Substance: DOXORUBICIN
     Dosage: ON DAY 1 AND DAY 2: AT 30 MG/MG2 I.E 39 MG
     Dates: start: 20141121
  9. ZOPHREN (ONDANSETRON) [Concomitant]
     Active Substance: ONDANSETRON
     Indication: PROPHYLAXIS OF NAUSEA AND VOMITING
  10. IFOSFAMIDE. [Suspect]
     Active Substance: IFOSFAMIDE
     Indication: RHABDOMYOSARCOMA
     Dosage: 3000 MG/M2 ON DAY 1 I.E 4200 MG
     Route: 042
     Dates: start: 20141013, end: 20141031
  11. DACTINOMYCIN [Concomitant]
     Active Substance: DACTINOMYCIN
     Dosage: AT DAY 1: AT 1500 MICROG/M2
     Dates: start: 20141121
  12. LARGACTIL [Concomitant]
     Active Substance: CHLORPROMAZINE
     Indication: PROPHYLAXIS OF NAUSEA AND VOMITING
  13. PLITICAN [Concomitant]
     Active Substance: ALIZAPRIDE HYDROCHLORIDE
     Indication: PROPHYLAXIS OF NAUSEA AND VOMITING
  14. DEXAMETHASONE. [Concomitant]
     Active Substance: DEXAMETHASONE

REACTIONS (1)
  - Encephalopathy [Recovered/Resolved]

NARRATIVE: CASE EVENT DATE: 20141101
